FAERS Safety Report 25214502 (Version 1)
Quarter: 2025Q2

REPORT INFORMATION
  Report Type: Spontaneous
  Country: CA (occurrence: CA)
  Receive Date: 20250418
  Receipt Date: 20250418
  Transmission Date: 20250716
  Serious: Yes (Disabling)
  Sender: PFIZER
  Company Number: CA-PFIZER INC-202500079932

PATIENT
  Age: 61 Year
  Sex: Male

DRUGS (4)
  1. CALCIUM CHLORIDE [Suspect]
     Active Substance: CALCIUM CHLORIDE
  2. DEXTROSE\WATER [Concomitant]
     Active Substance: DEXTROSE\WATER
  3. DEXTROSE [Concomitant]
     Active Substance: DEXTROSE MONOHYDRATE
  4. SODIUM CHLORIDE [Concomitant]
     Active Substance: SODIUM CHLORIDE

REACTIONS (4)
  - Blister [Unknown]
  - Peripheral swelling [Unknown]
  - Pulse abnormal [Unknown]
  - Skin discolouration [Unknown]
